FAERS Safety Report 23290487 (Version 3)
Quarter: 2024Q1

REPORT INFORMATION
  Report Type: Spontaneous
  Country: EG (occurrence: EG)
  Receive Date: 20231213
  Receipt Date: 20240103
  Transmission Date: 20240410
  Serious: Yes (Death, Other)
  Sender: FDA-Public Use
  Company Number: EG-CHIESI-2023CHF06656

PATIENT

DRUGS (2)
  1. CUROSURF [Suspect]
     Active Substance: PORACTANT ALFA
     Indication: Premature baby
     Dosage: 1.5 MILLILITER
     Route: 007
     Dates: start: 20231016
  2. CUROSURF [Suspect]
     Active Substance: PORACTANT ALFA
     Dosage: 1.5 MILLILITER
     Route: 007
     Dates: start: 20231017

REACTIONS (1)
  - Cardiac failure [Fatal]
